FAERS Safety Report 10205538 (Version 3)
Quarter: 2014Q2

REPORT INFORMATION
  Report Type: Spontaneous
  Country: DE (occurrence: DE)
  Receive Date: 20140529
  Receipt Date: 20140630
  Transmission Date: 20141212
  Serious: Yes (Life-Threatening, Hospitalization, Other)
  Sender: FDA-Public Use
  Company Number: DE-GILEAD-2014-0103474

PATIENT
  Age: 51 Year
  Sex: Male
  Weight: 80 kg

DRUGS (10)
  1. SOVALDI [Suspect]
     Indication: HEPATITIS C
     Dosage: 400 MG, QD
     Route: 065
     Dates: start: 20140331
  2. RIBAVIRIN [Suspect]
     Indication: HEPATITIS C
     Dosage: 800 MG, QD
     Route: 065
  3. RIBAVIRIN [Suspect]
     Dosage: 1200 MG, QD
     Route: 065
     Dates: start: 20140331
  4. ATRIPLA [Suspect]
     Indication: HIV INFECTION
     Dosage: 1 DF, QD
     Route: 048
     Dates: start: 200905
  5. PROPRANOLOL [Concomitant]
     Dosage: UNK
     Dates: start: 201311
  6. TORASEMID [Concomitant]
     Dosage: UNK
     Dates: start: 201310
  7. SPIRONOLACTONE [Concomitant]
     Dosage: UNK
     Dates: start: 201310
  8. CLEXANE [Concomitant]
     Dosage: UNK
     Dates: start: 20140508
  9. NOVALGIN                           /00169801/ [Concomitant]
     Dosage: UNK
     Dates: start: 20140502
  10. L-ORNITHINE [Concomitant]

REACTIONS (12)
  - Hepatic cirrhosis [Unknown]
  - Hepatic encephalopathy [Recovering/Resolving]
  - Oedema peripheral [Unknown]
  - Thrombosis [Recovered/Resolved]
  - Anaemia [Recovering/Resolving]
  - Hepatorenal syndrome [Recovering/Resolving]
  - Ascites [Recovering/Resolving]
  - Diabetes mellitus [Not Recovered/Not Resolved]
  - Hyperkalaemia [Unknown]
  - Metabolic acidosis [Unknown]
  - Varices oesophageal [Unknown]
  - Renal failure [Recovered/Resolved]
